FAERS Safety Report 8124272-5 (Version None)
Quarter: 2012Q1

REPORT INFORMATION
  Report Type: 
  Country: None (occurrence: None)
  Receive Date: 20120209
  Receipt Date: 20120203
  Transmission Date: 20120608
  Serious: Yes (Other)
  Sender: FDA-Public Use
  Company Number: BR-PFIZER INC-2012012071

PATIENT
  Age: 74 Year
  Sex: Female
  Weight: 67 kg

DRUGS (2)
  1. SUTENT [Suspect]
     Indication: METASTATIC RENAL CELL CARCINOMA
     Dosage: 50 MG, DAILY
     Route: 048
     Dates: start: 20111001
  2. ENALAPRIL [Concomitant]
     Dosage: 5 MG, AS NEEDED

REACTIONS (5)
  - VOMITING [None]
  - ABDOMINAL PAIN [None]
  - URINARY TRACT INFECTION [None]
  - NAUSEA [None]
  - DIARRHOEA [None]
